FAERS Safety Report 8531017-3 (Version None)
Quarter: 2012Q3

REPORT INFORMATION
  Report Type: 
  Country: None (occurrence: None)
  Receive Date: 20120723
  Receipt Date: 20120717
  Transmission Date: 20120928
  Serious: Yes (Hospitalization)
  Sender: FDA-Public Use
  Company Number: AU-ROCHE-1090381

PATIENT
  Sex: Female

DRUGS (1)
  1. LUCENTIS [Suspect]
     Indication: AGE-RELATED MACULAR DEGENERATION
     Route: 050
     Dates: start: 20100101

REACTIONS (4)
  - VISION BLURRED [None]
  - VISUAL ACUITY REDUCED [None]
  - LOWER RESPIRATORY TRACT INFECTION [None]
  - DYSURIA [None]
